FAERS Safety Report 6902276-5 (Version None)
Quarter: 2010Q3

REPORT INFORMATION
  Report Type: 
  Country: None (occurrence: None)
  Receive Date: 20100803
  Receipt Date: 20080507
  Transmission Date: 20110219
  Serious: No
  Sender: FDA-Public Use
  Company Number: US-PFIZER INC-2008035939

PATIENT
  Sex: Male
  Weight: 88.6 kg

DRUGS (10)
  1. LYRICA [Suspect]
     Indication: HERPES ZOSTER
     Dates: start: 20080414
  2. MAVIK [Concomitant]
  3. ISOSORBIDE [Concomitant]
  4. SIMVASTATIN [Concomitant]
  5. NIASPAN [Concomitant]
  6. VESICARE [Concomitant]
  7. METOPROLOL [Concomitant]
  8. GLUCOVANCE [Concomitant]
  9. NAPROSYN [Concomitant]
     Dates: start: 20080414
  10. VALTREX [Concomitant]
     Dates: start: 20080414

REACTIONS (2)
  - EXPIRED DRUG ADMINISTERED [None]
  - PAIN [None]
